FAERS Safety Report 8133349-X (Version None)
Quarter: 2012Q1

REPORT INFORMATION
  Report Type: 
  Country: None (occurrence: None)
  Receive Date: 20120213
  Receipt Date: 20120201
  Transmission Date: 20120608
  Serious: Yes (Hospitalization)
  Sender: FDA-Public Use
  Company Number: US-ACTELION-A-US2011-58909

PATIENT

DRUGS (3)
  1. REMODULIN [Concomitant]
  2. TRACLEER [Suspect]
     Indication: PULMONARY ARTERIAL HYPERTENSION
     Dosage: UNK
     Route: 047
     Dates: start: 20100706
  3. COUMADIN [Concomitant]

REACTIONS (2)
  - MEDICAL DEVICE COMPLICATION [None]
  - INTRAVENOUS CATHETER MANAGEMENT [None]
